FAERS Safety Report 6795233-3 (Version None)
Quarter: 2010Q2

REPORT INFORMATION
  Report Type: 
  Country: None (occurrence: None)
  Receive Date: 20100624
  Receipt Date: 20100624
  Transmission Date: 20101027
  Serious: No
  Sender: FDA-Public Use
  Company Number: None

PATIENT
  Age: 13 Year
  Sex: Male

DRUGS (1)
  1. RISPERIDONE [Suspect]
     Dosage: 3MG QHS ORAL
     Route: 048

REACTIONS (2)
  - MOOD SWINGS [None]
  - RESTLESSNESS [None]
